FAERS Safety Report 4450354-5 (Version None)
Quarter: 2004Q3

REPORT INFORMATION
  Report Type: 
  Country: None (occurrence: None)
  Receive Date: 20040914
  Receipt Date: 20040903
  Transmission Date: 20050211
  Serious: Yes (Life-Threatening)
  Sender: FDA-Public Use
  Company Number: 2004AP04671

PATIENT
  Sex: Male

DRUGS (3)
  1. SEROQUEL [Suspect]
     Indication: AGITATION
  2. SEROQUEL [Suspect]
     Indication: EMOTIONAL DISTRESS
  3. FLUCLOXICILLIN [Concomitant]

REACTIONS (1)
  - NEUTROPENIA [None]
